FAERS Safety Report 7388820-5 (Version None)
Quarter: 2011Q2

REPORT INFORMATION
  Report Type: 
  Country: None (occurrence: None)
  Receive Date: 20110401
  Receipt Date: 20110321
  Transmission Date: 20111010
  Serious: Yes (Death, Life-Threatening, Hospitalization)
  Sender: FDA-Public Use
  Company Number: FR-CELGENEUS-056-C5013-09101845

PATIENT
  Sex: Male
  Weight: 85 kg

DRUGS (8)
  1. LOVENOX [Concomitant]
     Indication: PHLEBITIS
  2. LOVENOX [Concomitant]
     Indication: OEDEMA
     Dosage: 4000 IU (INTERNATIONAL UNIT)
     Route: 058
     Dates: start: 20091022, end: 20091031
  3. TRANXENE [Concomitant]
     Indication: ANXIETY
     Route: 051
     Dates: start: 20091029, end: 20091031
  4. PRISTINAMYCINE [Concomitant]
     Indication: BIOPSY
     Dosage: 2 GRAM
     Route: 048
     Dates: start: 20091016, end: 20091028
  5. LYRICA [Concomitant]
     Dosage: 150 MILLIGRAM
     Route: 048
     Dates: start: 20090611, end: 20091028
  6. MORPHINE [Concomitant]
     Indication: PAIN
     Dosage: 50-60 MG
     Route: 051
     Dates: start: 20091029, end: 20091031
  7. TRANSENE [Concomitant]
     Indication: ANXIETY
     Dosage: 20-30 MG
     Route: 051
     Dates: start: 20091029, end: 20091031
  8. LENALIDOMIDE [Suspect]
     Indication: MANTLE CELL LYMPHOMA
     Dosage: 10 MILLIGRAM
     Route: 048
     Dates: start: 20091013, end: 20091023

REACTIONS (4)
  - HYPERCALCAEMIA [None]
  - BRONCHOPULMONARY ASPERGILLOSIS [None]
  - MANTLE CELL LYMPHOMA [None]
  - ASTHENIA [None]
